FAERS Safety Report 4927438-8 (Version None)
Quarter: 2006Q1

REPORT INFORMATION
  Report Type: 
  Country: None (occurrence: None)
  Receive Date: 20060208
  Receipt Date: 20060126
  Transmission Date: 20060701
  Serious: Yes (Hospitalization)
  Sender: FDA-Public Use
  Company Number: GBWYE721206JUN05

PATIENT
  Age: 3 Year
  Sex: Male

DRUGS (1)
  1. REFACTO [Suspect]
     Indication: VON WILLEBRAND'S DISEASE
     Dosage: ('ON DEMAND' THERAPY)

REACTIONS (3)
  - ANTI FACTOR VIII ANTIBODY POSITIVE [None]
  - EPISTAXIS [None]
  - VARICELLA [None]
